FAERS Safety Report 12375148 (Version 1)
Quarter: 2016Q2

REPORT INFORMATION
  Report Type: Spontaneous
  Country: US (occurrence: US)
  Receive Date: 20160517
  Receipt Date: 20160517
  Transmission Date: 20160815
  Serious: Yes (Hospitalization)
  Sender: FDA-Public Use
  Company Number: US-ROCHE-1758307

PATIENT
  Age: 57 Year
  Sex: Male

DRUGS (9)
  1. TRAMADOL HCL [Concomitant]
     Active Substance: TRAMADOL HYDROCHLORIDE
  2. REMICADE [Concomitant]
     Active Substance: INFLIXIMAB
  3. DICLOXACILLIN SODIUM. [Concomitant]
     Active Substance: DICLOXACILLIN SODIUM
  4. ACTEMRA [Suspect]
     Active Substance: TOCILIZUMAB
     Indication: RHEUMATOID ARTHRITIS
     Route: 058
  5. LISINOPRIL. [Concomitant]
     Active Substance: LISINOPRIL
  6. SULFASALAZINE. [Concomitant]
     Active Substance: SULFASALAZINE
  7. ALEVE [Concomitant]
     Active Substance: NAPROXEN SODIUM
  8. PREDNISONE. [Concomitant]
     Active Substance: PREDNISONE
  9. XELJANZ [Concomitant]
     Active Substance: TOFACITINIB CITRATE

REACTIONS (2)
  - Pneumothorax [Unknown]
  - Infection [Unknown]
